FAERS Safety Report 24646460 (Version 1)
Quarter: 2024Q4

REPORT INFORMATION
  Report Type: Spontaneous
  Country: BR (occurrence: BR)
  Receive Date: 20241121
  Receipt Date: 20241121
  Transmission Date: 20250114
  Serious: Yes (Other)
  Sender: NOVARTIS
  Company Number: BR-002147023-NVSC2024BR218643

PATIENT
  Sex: Female
  Weight: 74 kg

DRUGS (3)
  1. FEMARA [Suspect]
     Active Substance: LETROZOLE
     Indication: Breast cancer
     Dosage: 1 DOSAGE FORM, QD (2.5 C 28 CPS)
     Route: 065
     Dates: start: 2015, end: 202410
  2. DESVENLAFAXINE [Concomitant]
     Active Substance: DESVENLAFAXINE
     Indication: Menopausal symptoms
     Dosage: 1 DOSAGE FORM, QD (ONE CAPSULE OF 150 MG AND 1 CAPSULE OF 75 MG PER DAY, STARTED BEFORE FEMARA)
     Route: 048
     Dates: start: 2013
  3. RIVOTRIL [Concomitant]
     Active Substance: CLONAZEPAM
     Indication: Insomnia
     Dosage: UNK (8 DROPS AT NIGHT, STARTED 6 MONTHS AGO)
     Route: 048

REACTIONS (3)
  - Breast cancer recurrent [Recovered/Resolved]
  - Osteopenia [Not Recovered/Not Resolved]
  - Breast mass [Not Recovered/Not Resolved]

NARRATIVE: CASE EVENT DATE: 20180101
